FAERS Safety Report 21198643 (Version 1)
Quarter: 2022Q3

REPORT INFORMATION
  Report Type: Spontaneous
  Country: US (occurrence: None)
  Receive Date: 20220811
  Receipt Date: 20220811
  Transmission Date: 20221026
  Serious: No
  Sender: FDA-Public Use
  Company Number: US-Merck Healthcare KGaA-9340042

PATIENT
  Sex: Male

DRUGS (1)
  1. SEROSTIM [Suspect]
     Active Substance: SOMATROPIN
     Indication: Lipodystrophy acquired
     Route: 058
     Dates: start: 20180126

REACTIONS (3)
  - Depression [Unknown]
  - Feeling abnormal [Unknown]
  - Hyperhidrosis [Unknown]
